FAERS Safety Report 15770430 (Version 1)
Quarter: 2018Q4

REPORT INFORMATION
  Report Type: Spontaneous
  Country: GB (occurrence: GB)
  Receive Date: 20181228
  Receipt Date: 20181228
  Transmission Date: 20190205
  Serious: Yes (Death)
  Sender: FDA-Public Use
  Company Number: GB-TEVA-2018-GB-992511

PATIENT
  Age: 5 Year
  Sex: Male
  Weight: 17 kg

DRUGS (5)
  1. BRIVARACETAM [Concomitant]
     Active Substance: BRIVARACETAM
     Route: 065
  2. MIDAZOLAM HYDROCHLORIDE. [Concomitant]
     Active Substance: MIDAZOLAM HYDROCHLORIDE
     Route: 065
  3. OXCARBAZEPINE. [Concomitant]
     Active Substance: OXCARBAZEPINE
     Route: 065
  4. CLOBAZAM. [Concomitant]
     Active Substance: CLOBAZAM
     Route: 065
  5. SODIUM VALPROATE [Suspect]
     Active Substance: VALPROATE SODIUM
     Indication: FOCAL DYSCOGNITIVE SEIZURES
     Dosage: 560 MILLIGRAM DAILY;
     Route: 048
     Dates: start: 20180725, end: 20180913

REACTIONS (1)
  - Acute hepatic failure [Fatal]

NARRATIVE: CASE EVENT DATE: 20180906
